FAERS Safety Report 13395342 (Version 3)
Quarter: 2017Q2

REPORT INFORMATION
  Report Type: Spontaneous
  Country: US (occurrence: US)
  Receive Date: 20170403
  Receipt Date: 20170504
  Transmission Date: 20170830
  Serious: No
  Sender: FDA-Public Use
  Company Number: US-PFIZER INC-2017141424

PATIENT
  Age: 61 Year
  Sex: Female
  Weight: 68 kg

DRUGS (6)
  1. XGEVA [Concomitant]
     Active Substance: DENOSUMAB
     Indication: BONE DISORDER
  2. IBRANCE [Suspect]
     Active Substance: PALBOCICLIB
     Indication: BREAST CANCER STAGE IV
     Dosage: 125 MG, CYCLIC (1X/DAY, 3 WEEKS AND HAS 1 WEEK OFF)
     Route: 048
     Dates: start: 201506
  3. ATORVASTATIN [Concomitant]
     Active Substance: ATORVASTATIN
     Indication: BLOOD CHOLESTEROL INCREASED
     Dosage: 20 MG, DAILY
  4. LETROZOLE. [Suspect]
     Active Substance: LETROZOLE
     Indication: BREAST CANCER STAGE IV
     Dosage: 2.5 MG, DAILY
     Dates: start: 201506
  5. METOPROLOL. [Concomitant]
     Active Substance: METOPROLOL
     Indication: HEART RATE INCREASED
     Dosage: 50 MG, 2X/DAY
  6. XGEVA [Concomitant]
     Active Substance: DENOSUMAB
     Indication: BREAST CANCER METASTATIC
     Dosage: GETS A SHOT ONCE A MONTH IN HER ARM
     Dates: start: 201506

REACTIONS (9)
  - Hyperhidrosis [Not Recovered/Not Resolved]
  - Oropharyngeal pain [Unknown]
  - Noninfective gingivitis [Unknown]
  - Oral mucosal exfoliation [Unknown]
  - Oral discomfort [Unknown]
  - Ear pain [Unknown]
  - Hypersomnia [Not Recovered/Not Resolved]
  - Fatigue [Recovering/Resolving]
  - Night sweats [Unknown]

NARRATIVE: CASE EVENT DATE: 2015
